FAERS Safety Report 8756213 (Version 1)
Quarter: 2012Q4

REPORT INFORMATION
  Report Type: 
  Country: NL (occurrence: NL)
  Receive Date: 20120828
  Receipt Date: 20120828
  Transmission Date: 20130627
  Serious: Yes (Other)
  Sender: FDA-Public Use
  Company Number: PHHY2012NL073280

PATIENT
  Sex: Female
  Weight: 79 kg

DRUGS (1)
  1. GLIVEC [Suspect]
     Indication: CHRONIC MYELOID LEUKAEMIA
     Dosage: 400 mg, QD
     Dates: start: 20120314, end: 20120704

REACTIONS (1)
  - Systemic sclerosis [Not Recovered/Not Resolved]
